FAERS Safety Report 18128435 (Version 1)
Quarter: 2020Q3

REPORT INFORMATION
  Report Type: Spontaneous
  Country: US (occurrence: US)
  Receive Date: 20200807
  Receipt Date: 20200807
  Transmission Date: 20201103
  Serious: No
  Sender: FDA-Public Use
  Company Number: None

PATIENT
  Age: 10 Year
  Sex: Female
  Weight: 20.5 kg

DRUGS (3)
  1. AMBRISENTAN [Suspect]
     Active Substance: AMBRISENTAN
     Indication: PULMONARY HYPERTENSION
     Dates: start: 20180222
  2. TADALAFIL. [Concomitant]
     Active Substance: TADALAFIL
     Dates: start: 20160801
  3. INHALED TREPROSTINIL [Concomitant]
     Dates: start: 20160118

REACTIONS (1)
  - Papilloedema [None]

NARRATIVE: CASE EVENT DATE: 20200731
